FAERS Safety Report 8380947-4 (Version None)
Quarter: 2012Q2

REPORT INFORMATION
  Report Type: 
  Country: None (occurrence: None)
  Receive Date: 20120523
  Receipt Date: 20120516
  Transmission Date: 20120825
  Serious: Yes (Life-Threatening, Hospitalization)
  Sender: FDA-Public Use
  Company Number: JP-PFIZER INC-2009170990

PATIENT
  Age: 47 Year
  Sex: Male

DRUGS (5)
  1. SUNITINIB MALATE [Suspect]
     Dosage: 50 MG, 1X/DAY
     Route: 048
     Dates: start: 20090114, end: 20090210
  2. DILTIAZEM [Concomitant]
     Dosage: UNK
     Route: 048
     Dates: start: 20081125, end: 20090210
  3. SUNITINIB MALATE [Suspect]
     Dosage: 37.5 MG, 1X/DAY
     Route: 048
     Dates: start: 20090413
  4. PERINDOPRIL ERBUMINE [Concomitant]
     Dosage: UNK
     Route: 048
     Dates: end: 20090210
  5. SUNITINIB MALATE [Suspect]
     Indication: RENAL CELL CARCINOMA
     Dosage: 50 MG, 1X/DAY
     Route: 048
     Dates: start: 20081203, end: 20081231

REACTIONS (2)
  - HAEMOPTYSIS [None]
  - PNEUMONIA [None]
